FAERS Safety Report 8596262-X (Version None)
Quarter: 2012Q3

REPORT INFORMATION
  Report Type: 
  Country: None (occurrence: None)
  Receive Date: 20120815
  Receipt Date: 20120808
  Transmission Date: 20120928
  Serious: Yes (Hospitalization, Other)
  Sender: FDA-Public Use
  Company Number: US-TEVA-352731USA

PATIENT
  Age: 68 Year
  Sex: Male
  Weight: 86.26 kg

DRUGS (3)
  1. NUVIGIL [Suspect]
     Route: 048
  2. NUVIGIL [Suspect]
     Route: 048
     Dates: start: 20120402
  3. NUVIGIL [Suspect]
     Indication: NARCOLEPSY
     Route: 048

REACTIONS (7)
  - INSOMNIA [None]
  - CHEST DISCOMFORT [None]
  - DEVICE OCCLUSION [None]
  - ANXIETY [None]
  - DRUG EFFECT DECREASED [None]
  - CARDIOVASCULAR DISORDER [None]
  - POLLAKIURIA [None]
